FAERS Safety Report 5887904-8 (Version None)
Quarter: 2008Q3

REPORT INFORMATION
  Report Type: 
  Country: None (occurrence: None)
  Receive Date: 20080918
  Receipt Date: 20080915
  Transmission Date: 20090109
  Serious: Yes (Other)
  Sender: FDA-Public Use
  Company Number: A0747475A

PATIENT
  Age: 61 Year
  Sex: Male

DRUGS (12)
  1. ADVAIR DISKUS 100/50 [Suspect]
     Indication: COUGH
     Dosage: 1PUFF PER DAY
     Route: 055
     Dates: start: 20070901
  2. RENAGEL [Concomitant]
  3. UNSPECIFIED MEDICATION [Concomitant]
  4. TOPROL-XL [Concomitant]
  5. ASPIRIN [Concomitant]
  6. SYNTHROID [Concomitant]
  7. VITAMIN [Concomitant]
  8. LOVAZA [Concomitant]
  9. IRON SUPPLEMENT [Concomitant]
  10. PRILOSEC [Concomitant]
  11. HECTOROL [Concomitant]
  12. CINACALCET HYDROCHLORIDE [Concomitant]

REACTIONS (3)
  - COUGH [None]
  - DYSPNOEA [None]
  - PULMONARY OEDEMA [None]
